FAERS Safety Report 13656647 (Version 1)
Quarter: 2017Q2

REPORT INFORMATION
  Report Type: Spontaneous
  Country: AU (occurrence: AU)
  Receive Date: 20170615
  Receipt Date: 20170615
  Transmission Date: 20170830
  Serious: Yes (Other)
  Sender: FDA-Public Use
  Company Number: AU-INCYTE CORPORATION-2017IN004612

PATIENT

DRUGS (5)
  1. JAKAVI [Suspect]
     Active Substance: RUXOLITINIB
     Indication: MYELOFIBROSIS
     Dosage: 20 MG, BID
     Route: 065
  2. EXJADE [Suspect]
     Active Substance: DEFERASIROX
     Indication: MYELOFIBROSIS
     Route: 065
  3. JAKAVI [Suspect]
     Active Substance: RUXOLITINIB
     Dosage: 10 MG, BID
     Route: 065
  4. 5-AZACYTIDINE [Suspect]
     Active Substance: AZACITIDINE
     Indication: MYELOFIBROSIS
     Route: 065
     Dates: start: 201703
  5. JAKAVI [Suspect]
     Active Substance: RUXOLITINIB
     Dosage: UNK
     Route: 065
     Dates: start: 201703

REACTIONS (7)
  - Febrile neutropenia [Unknown]
  - Pancytopenia [Unknown]
  - Renal impairment [Unknown]
  - Neutropenia [Unknown]
  - Product use in unapproved indication [Unknown]
  - Blast cell count increased [Unknown]
  - Acute myeloid leukaemia [Unknown]
